FAERS Safety Report 4786583-0 (Version None)
Quarter: 2005Q3

REPORT INFORMATION
  Report Type: 
  Country: None (occurrence: None)
  Receive Date: 20050927
  Receipt Date: 20050803
  Transmission Date: 20060218
  Serious: No
  Sender: FDA-Public Use
  Company Number: USA0506101708

PATIENT
  Age: 50 Year
  Sex: Male
  Weight: 117 kg

DRUGS (5)
  1. STRATTERA [Suspect]
     Indication: ATTENTION DEFICIT/HYPERACTIVITY DISORDER
     Dates: start: 20040101
  2. CYMBALTA [Suspect]
     Indication: DEPRESSION
     Dosage: 150 MG DAY
     Dates: start: 20050301
  3. CYMBALTA [Suspect]
     Indication: PAIN
     Dosage: 150 MG DAY
     Dates: start: 20050301
  4. CYMBALTA [Suspect]
     Indication: RESTLESS LEGS SYNDROME
     Dosage: 150 MG DAY
     Dates: start: 20050301
  5. SINEMET [Concomitant]

REACTIONS (5)
  - DRUG EFFECT DECREASED [None]
  - DRUG INEFFECTIVE [None]
  - MALAISE [None]
  - PRESCRIBED OVERDOSE [None]
  - SUICIDAL IDEATION [None]
